FAERS Safety Report 18755121 (Version 1)
Quarter: 2021Q1

REPORT INFORMATION
  Report Type: Spontaneous
  Country: US (occurrence: US)
  Receive Date: 20210118
  Receipt Date: 20210118
  Transmission Date: 20210419
  Serious: Yes (Death)
  Sender: FDA-Public Use
  Company Number: None

PATIENT
  Age: 73 Year
  Sex: Male
  Weight: 58.5 kg

DRUGS (1)
  1. BAMLANIVIMAB. [Suspect]
     Active Substance: BAMLANIVIMAB
     Indication: COVID-19
     Dosage: ?          OTHER FREQUENCY:ONCE;?
     Route: 042
     Dates: start: 20201120, end: 20201120

REACTIONS (9)
  - Lactic acidosis [None]
  - Cardiac failure [None]
  - Cardiogenic shock [None]
  - Paraesthesia [None]
  - Dyspnoea [None]
  - Septic shock [None]
  - Hepatic failure [None]
  - Hypoaesthesia [None]
  - Palpitations [None]

NARRATIVE: CASE EVENT DATE: 20201130
